FAERS Safety Report 12857027 (Version 1)
Quarter: 2016Q4

REPORT INFORMATION
  Report Type: Spontaneous
  Country: IT (occurrence: IT)
  Receive Date: 20161018
  Receipt Date: 20161018
  Transmission Date: 20170207
  Serious: Yes (Life-Threatening)
  Sender: FDA-Public Use
  Company Number: IT-BAYER-2016-196942

PATIENT
  Age: 58 Year
  Sex: Male

DRUGS (2)
  1. OKI [Suspect]
     Active Substance: KETOPROFEN LYSINE
     Indication: SCIATICA
     Dosage: 1 DF, QD
     Route: 048
     Dates: start: 20161001, end: 20161002
  2. ASPIRINA RAPIDA [Suspect]
     Active Substance: ASPIRIN
     Indication: SCIATICA
     Dosage: 1 DF, QD
     Route: 048
     Dates: start: 20160929, end: 20160930

REACTIONS (1)
  - Gastric ulcer perforation [Recovered/Resolved]

NARRATIVE: CASE EVENT DATE: 20161003
